FAERS Safety Report 14997379 (Version 1)
Quarter: 2018Q2

REPORT INFORMATION
  Report Type: Spontaneous
  Country: US (occurrence: US)
  Receive Date: 20180611
  Receipt Date: 20180611
  Transmission Date: 20180711
  Serious: Yes (Hospitalization, Other)
  Sender: FDA-Public Use
  Company Number: US-PFIZER INC-2016391450

PATIENT
  Age: 68 Year
  Sex: Male
  Weight: 92.8 kg

DRUGS (37)
  1. ALCOHOL PREP PAD [Concomitant]
     Active Substance: ISOPROPYL ALCOHOL
     Dosage: UNK (1 EACH TO AFFECTED AREA AS DIRECTED)
     Route: 061
     Dates: start: 20160713
  2. LANTUS [Concomitant]
     Active Substance: INSULIN GLARGINE
     Dosage: 14 IU, DAILY (100 UNIT/ML (3 ML), INJECT 14 UNITS UNDER SKIN DAILY)
     Route: 058
     Dates: start: 20160713
  3. TOPROL XL [Concomitant]
     Active Substance: METOPROLOL SUCCINATE
     Dosage: 50 MG, DAILY (DO NOT CRUSH OR CHEW)
     Route: 048
     Dates: start: 20160602
  4. PROTONIX /00661201/ [Concomitant]
     Active Substance: OMEPRAZOLE
     Dosage: 40 MG, 2X/DAY (DO NOT CUT, CRUSH OR CHEW TABLET)
     Route: 048
     Dates: start: 20160606
  5. MIRALAX [Concomitant]
     Active Substance: POLYETHYLENE GLYCOL 3350
     Indication: CONSTIPATION
     Dosage: 17 G, AS NEEDED
     Route: 048
     Dates: start: 20160602
  6. PRAVACHOL [Concomitant]
     Active Substance: PRAVASTATIN SODIUM
     Dosage: 20 MG, 1X/DAY (AT BEDTIME)
     Route: 048
     Dates: start: 20160602
  7. SENOKOT [Concomitant]
     Active Substance: SENNOSIDES
     Dosage: 8.6 MG, 2X/DAY
     Route: 048
     Dates: start: 20160602
  8. VFEND [Suspect]
     Active Substance: VORICONAZOLE
     Indication: LUNG TRANSPLANT
     Dosage: 300 MG, 2X/DAY (200 MG, 1.5 TABS (300 MG) BID
     Route: 048
     Dates: start: 20160806
  9. ECOTRIN [Concomitant]
     Active Substance: ASPIRIN
     Dosage: 81 MG, DAILY (DAILY WITH BREAKFAST)
     Route: 048
     Dates: start: 20160602
  10. MYCELEX [Concomitant]
     Active Substance: CLOTRIMAZOLE
     Dosage: 10 MG, 4X/DAY (TAKE 1 TROCHE (10 MG TOTAL) BY MOUTH)
     Route: 048
     Dates: start: 20160602
  11. COLACE [Concomitant]
     Active Substance: DOCUSATE SODIUM
     Dosage: 100 MG, 2X/DAY
     Route: 048
     Dates: start: 20160602
  12. K-DUR [Concomitant]
     Active Substance: POTASSIUM CHLORIDE
     Dosage: 10 MEQ, DAILY (DO NOT DRUSH OR CHEW)
     Route: 048
     Dates: start: 20160603
  13. SPIRIVA [Concomitant]
     Active Substance: TIOTROPIUM BROMIDE MONOHYDRATE
     Dosage: UNK, DAILY (INHALE 1 PUFF LN LUNGS DAILY. CAPSULES FOR USE IN HANDIHALER ONLY)
     Dates: start: 20160602
  14. ULTRAM [Concomitant]
     Active Substance: TRAMADOL HYDROCHLORIDE
     Indication: PAIN
     Dosage: 50 MG, EVERY 4 HRS
     Route: 048
     Dates: start: 20160602
  15. XANAX [Concomitant]
     Active Substance: ALPRAZOLAM
     Indication: ANXIETY
     Dosage: 0.125 MG, 2X/DAY
     Route: 048
     Dates: start: 20160602
  16. THERAGRAN /01824401/ [Concomitant]
     Dosage: 1 DF, 1X/DAY (DAILY AT NOON)
     Route: 048
     Dates: start: 20160602
  17. CELLCEPT [Concomitant]
     Active Substance: MYCOPHENOLATE MOFETIL\MYCOPHENOLATE MOFETIL HYDROCHLORIDE
     Dosage: 1000 MG, 2X/DAY (DO NOT CRUSH, CHEW, OR CUT TABLETS. TAKE ON AN EMPTY STOMACH)
     Route: 048
     Dates: start: 20160808
  18. TACROLIMUS. [Concomitant]
     Active Substance: TACROLIMUS
     Indication: LUNG TRANSPLANT
     Dosage: 1 MG, 2X/DAY (1 MG AT 9 AM AND 1 MG AT 9 PM)
     Route: 048
     Dates: start: 20160806
  19. BACTRIM [Concomitant]
     Active Substance: SULFAMETHOXAZOLE\TRIMETHOPRIM
     Dosage: 1 DF, DAILY (SULFAMETHOXAZOLE 400MG-TRIMETHOPRIM 80 MG
     Route: 048
     Dates: start: 20160602
  20. PREDNISONE. [Concomitant]
     Active Substance: PREDNISONE
     Dosage: UNK
  21. VITAMIN C [Concomitant]
     Active Substance: ASCORBIC ACID
     Dosage: 500 MG, 2X/DAY (AFTER LUNCH AND DINNER)
     Route: 048
     Dates: start: 20160602
  22. BUSPAR [Concomitant]
     Active Substance: BUSPIRONE HYDROCHLORIDE
     Dosage: 10 MG, DAILY
     Route: 048
     Dates: start: 20160602
  23. FERROUS SULFATE. [Concomitant]
     Active Substance: FERROUS SULFATE
     Dosage: 325 MG, 2X/DAY (AFTER LUNCH AND DINNER)
     Route: 048
     Dates: start: 20160602
  24. LASIX [Concomitant]
     Active Substance: FUROSEMIDE
     Dosage: 40 MG, 2X/DAY
     Route: 048
     Dates: start: 20160806
  25. DELTASONE [Concomitant]
     Active Substance: PREDNISONE
     Dosage: 15 MG, 2X/DAY (5 MG TABLET/ TAKE 3 TABS)
     Route: 048
     Dates: start: 20160806
  26. VALCYTE [Concomitant]
     Active Substance: VALGANCICLOVIR HYDROCHLORIDE
     Dosage: 450 MG, 2X/DAY (DO NOT CUT, CRUSH, OR CHEW TABLETS, BRAND MEDICALLY NECESSARY)
     Route: 048
     Dates: start: 20160617
  27. VFEND [Suspect]
     Active Substance: VORICONAZOLE
     Indication: FUNGAL INFECTION
  28. LIDODERM [Concomitant]
     Active Substance: LIDOCAINE
     Dosage: 2 DF, DAILY (5% ADHESIVE PATCH APPLY 2 PATCHES TO SKIN EVERY 24 HOURS. REMOVE PATCH AFTER 12 HRS)
     Route: 062
     Dates: start: 20160609
  29. ZYRTEC [Concomitant]
     Active Substance: CETIRIZINE HYDROCHLORIDE
     Dosage: 10 MG, DAILY
     Route: 048
     Dates: start: 20160602
  30. NORCO [Concomitant]
     Active Substance: ACETAMINOPHEN\HYDROCODONE BITARTRATE
     Indication: PAIN
     Dosage: 1 DF, EVERY 4 HRS ((HYDROCODONE BITARTRATE 10 MG AND ACETAMINOPHEN 325 MG); EVERY 4 HOURS)
     Route: 048
     Dates: start: 20160602
  31. VFEND [Suspect]
     Active Substance: VORICONAZOLE
     Indication: LUNG DISORDER
     Dosage: 200 MG, 2X/DAY (MORNING AND NIGHT)
     Dates: start: 2017
  32. CITRACAL /08167101/ [Concomitant]
     Dosage: 2 DF, 2X/DAY (250 MG CALCIUM-200 UNIT/ AFTER LUNCH AND DINNER)
     Route: 048
     Dates: start: 20160602
  33. HUMALOG [Concomitant]
     Active Substance: INSULIN LISPRO
     Dosage: 1 IU, 3X/DAY (100 UNIT/ML SUBCUTANEOUS PEN/TAKE 1 UNITS THREE TIMES DAILY WITH MEALS)
     Route: 058
     Dates: start: 20160713
  34. SEPTRA [Concomitant]
     Active Substance: SULFAMETHOXAZOLE\TRIMETHOPRIM
     Dosage: 1 DF, DAILY (SULFAMETHOXAZOLE 400MG-TRIMETHOPRIM 80 MG
     Route: 048
     Dates: start: 20160602
  35. FOSAMAX [Concomitant]
     Active Substance: ALENDRONATE SODIUM
     Dosage: 70 MG,WEEKLY ON WEDNESDAYS, TAKE 1/2 HR BEFORE BREAKFAST WITH WATER AND UPRIGHT FOR 30 MINS
     Route: 048
     Dates: start: 20160602
  36. DESYREL [Concomitant]
     Active Substance: TRAZODONE HYDROCHLORIDE
     Dosage: 50 MG, 1X/DAY (AT BEDTIME)
     Route: 048
     Dates: start: 20160617
  37. COUMADIN [Concomitant]
     Active Substance: WARFARIN SODIUM
     Dosage: 4 MG, 1X/DAY (AT BEDTIME)
     Route: 048
     Dates: start: 20160602

REACTIONS (3)
  - Product use in unapproved indication [Unknown]
  - International normalised ratio decreased [Not Recovered/Not Resolved]
  - Lung transplant rejection [Unknown]

NARRATIVE: CASE EVENT DATE: 20180604
